FAERS Safety Report 8582281-6 (Version None)
Quarter: 2012Q3

REPORT INFORMATION
  Report Type: 
  Country: None (occurrence: None)
  Receive Date: 20120809
  Receipt Date: 20111005
  Transmission Date: 20120928
  Serious: Yes (Other)
  Sender: FDA-Public Use
  Company Number: US-ROCHE-1003118

PATIENT
  Sex: Female
  Weight: 49.486 kg

DRUGS (2)
  1. DECADRON PHOSPHATE [Concomitant]
     Indication: METASTASES TO CENTRAL NERVOUS SYSTEM
     Route: 048
     Dates: start: 20110801
  2. ZELBORAF [Suspect]
     Indication: MALIGNANT MELANOMA
     Route: 048
     Dates: start: 20110910, end: 20111008

REACTIONS (7)
  - METASTASES TO CENTRAL NERVOUS SYSTEM [None]
  - ARTHRALGIA [None]
  - NAUSEA [None]
  - VISION BLURRED [None]
  - FATIGUE [None]
  - STOMATITIS [None]
  - LIP ULCERATION [None]
